FAERS Safety Report 5395269-3 (Version None)
Quarter: 2007Q3

REPORT INFORMATION
  Report Type: 
  Country: None (occurrence: None)
  Receive Date: 20070724
  Receipt Date: 20070717
  Transmission Date: 20080115
  Serious: Yes (Other)
  Sender: FDA-Public Use
  Company Number: AU-JNJFOC-20070703252

PATIENT
  Sex: Female

DRUGS (3)
  1. DURAGESIC-100 [Suspect]
     Indication: BACK INJURY
     Route: 062
  2. TRAMADOL HCL [Suspect]
     Indication: DRUG USE FOR UNKNOWN INDICATION
     Route: 065
  3. NORSPAN [Suspect]
     Indication: BACK INJURY
     Route: 062

REACTIONS (3)
  - CONVULSION [None]
  - DRUG WITHDRAWAL SYNDROME [None]
  - THERAPEUTIC AGENT TOXICITY [None]
